FAERS Safety Report 5292474-1 (Version None)
Quarter: 2007Q2

REPORT INFORMATION
  Report Type: 
  Country: None (occurrence: None)
  Receive Date: 20070403
  Receipt Date: 20070320
  Transmission Date: 20071010
  Serious: Yes (Death, Hospitalization, Other)
  Sender: FDA-Public Use
  Company Number: US019643

PATIENT
  Age: 51 Year
  Sex: Male

DRUGS (10)
  1. TRISENOX [Suspect]
     Indication: ACUTE PROMYELOCYTIC LEUKAEMIA
     Dosage: 9.165 MG QD INTRAVENOUS DRIP
     Route: 041
     Dates: start: 20051005, end: 20051101
  2. TRISENOX [Suspect]
     Indication: ACUTE PROMYELOCYTIC LEUKAEMIA
     Dosage: 9.165 MG QD INTRAVENOUS DRIP
     Route: 041
     Dates: start: 20060316, end: 20060316
  3. AMPHOTERICIN N [Suspect]
     Dosage: 20 MG QD INTRAVENOUS DRIP
     Route: 041
     Dates: start: 20051005, end: 20051025
  4. CEFTAZIDIME [Suspect]
     Dosage: 4 G GD INTRAVENOUS DRIP
     Route: 041
     Dates: start: 20051008, end: 20051015
  5. MICAFUNGIN SODIUM [Suspect]
     Dosage: 150 MG QD INTRAVENOUS DRIP
     Route: 041
     Dates: start: 20051012, end: 20051128
  6. IDARUBICIN HCL [Concomitant]
  7. CYTARABINE [Concomitant]
  8. DALTEPARIN SODIUM [Concomitant]
  9. ISEPAMICIN SULFATE [Concomitant]
  10. ARBEKACIN SULFATE [Concomitant]

REACTIONS (10)
  - ACUTE PROMYELOCYTIC LEUKAEMIA [None]
  - BLOOD ALKALINE PHOSPHATASE INCREASED [None]
  - BLOOD POTASSIUM DECREASED [None]
  - BLOOD UREA INCREASED [None]
  - ELECTROCARDIOGRAM QT PROLONGED [None]
  - MALAISE [None]
  - MALIGNANT NEOPLASM PROGRESSION [None]
  - RENAL IMPAIRMENT [None]
  - SEPSIS [None]
  - VOMITING [None]
